FAERS Safety Report 4704953-3 (Version None)
Quarter: 2005Q3

REPORT INFORMATION
  Report Type: 
  Country: None (occurrence: None)
  Receive Date: 20050701
  Receipt Date: 20050629
  Transmission Date: 20060218
  Serious: Yes (Life-Threatening)
  Sender: FDA-Public Use
  Company Number: AU-BOEHRINGER INGELHEIM PHARMACEUTICALS, INC.-2005-BP-10955AU

PATIENT
  Sex: Female

DRUGS (6)
  1. SPIRIVA [Suspect]
     Route: 055
     Dates: start: 20041215, end: 20041218
  2. SEREVENT [Concomitant]
     Route: 055
  3. LOSEC (OMEPRAZOLE) [Concomitant]
     Route: 048
  4. PULMICORT [Concomitant]
     Route: 055
  5. TEGRETOL [Concomitant]
     Route: 048
  6. ZOLOFT [Concomitant]
     Route: 048

REACTIONS (1)
  - LARYNGOSPASM [None]
